FAERS Safety Report 16080758 (Version 2)
Quarter: 2019Q2

REPORT INFORMATION
  Report Type: Report from Study
  Country: None (occurrence: US)
  Receive Date: 20190316
  Receipt Date: 20190515
  Transmission Date: 20190711
  Serious: Yes (Hospitalization)
  Sender: FDA-Public Use
  Company Number: US-ABBVIE-19K-163-2629303-00

PATIENT
  Age: 58 Year
  Sex: Female

DRUGS (2)
  1. HUMIRA [Suspect]
     Active Substance: ADALIMUMAB
     Indication: CROHN^S DISEASE
     Route: 058
  2. HUMIRA [Suspect]
     Active Substance: ADALIMUMAB
     Route: 058

REACTIONS (12)
  - Headache [Recovered/Resolved]
  - Cystitis [Unknown]
  - Immunodeficiency [Unknown]
  - Gastrointestinal pain [Unknown]
  - Sepsis [Unknown]
  - Weight increased [Unknown]
  - Infection susceptibility increased [Unknown]
  - Influenza [Recovered/Resolved]
  - Respiratory tract infection [Unknown]
  - Kidney infection [Not Recovered/Not Resolved]
  - Crohn^s disease [Recovering/Resolving]
  - Insomnia [Unknown]

NARRATIVE: CASE EVENT DATE: 2018
